FAERS Safety Report 7342625-X (Version None)
Quarter: 2011Q1

REPORT INFORMATION
  Report Type: 
  Country: None (occurrence: None)
  Receive Date: 20110310
  Receipt Date: 20100913
  Transmission Date: 20110831
  Serious: Yes (Hospitalization, Other)
  Sender: FDA-Public Use
  Company Number: US-BAYER-201026910NA

PATIENT
  Sex: Female
  Weight: 76.19 kg

DRUGS (1)
  1. YAZ [Suspect]
     Route: 048

REACTIONS (4)
  - MYOCARDIAL INFARCTION [None]
  - CHEST PAIN [None]
  - NAUSEA [None]
  - SINUS TACHYCARDIA [None]
